FAERS Safety Report 5501293-X (Version None)
Quarter: 2007Q4

REPORT INFORMATION
  Report Type: 
  Country: None (occurrence: None)
  Receive Date: 20071029
  Receipt Date: 20071017
  Transmission Date: 20080405
  Serious: Yes (Hospitalization, Other)
  Sender: FDA-Public Use
  Company Number: US-PFIZER INC-2007088758

PATIENT
  Sex: Male
  Weight: 75 kg

DRUGS (4)
  1. CHANTIX [Suspect]
     Indication: SMOKING CESSATION THERAPY
     Dosage: FREQ:DAY
     Route: 048
  2. DILANTIN [Concomitant]
  3. CARBAMAZEPINE [Concomitant]
  4. WARFARIN SODIUM [Concomitant]

REACTIONS (4)
  - ABNORMAL DREAMS [None]
  - CATHETERISATION CARDIAC [None]
  - CHEST PAIN [None]
  - WEIGHT DECREASED [None]
